FAERS Safety Report 24602476 (Version 3)
Quarter: 2025Q1

REPORT INFORMATION
  Report Type: Report from Study
  Country: US (occurrence: US)
  Receive Date: 20241111
  Receipt Date: 20250120
  Transmission Date: 20250409
  Serious: Yes (Disabling, Other)
  Sender: CSL BEHRING
  Company Number: US-BEH-2024177651

PATIENT
  Age: 50 Year
  Sex: Male
  Weight: 104 kg

DRUGS (2)
  1. HIZENTRA [Suspect]
     Active Substance: HUMAN IMMUNOGLOBULIN G
     Indication: Chronic inflammatory demyelinating polyradiculoneuropathy
     Route: 065
  2. HIZENTRA [Suspect]
     Active Substance: HUMAN IMMUNOGLOBULIN G
     Route: 065

REACTIONS (34)
  - Chronic inflammatory demyelinating polyradiculoneuropathy [Unknown]
  - Polyneuropathy [Recovering/Resolving]
  - Drug ineffective [Unknown]
  - Pain [Unknown]
  - Impaired work ability [Unknown]
  - Burning sensation [Unknown]
  - Neuralgia [Unknown]
  - Pain in extremity [Unknown]
  - Malaise [Unknown]
  - Pyrexia [Unknown]
  - Limb discomfort [Unknown]
  - Sinusitis [Unknown]
  - Fatigue [Unknown]
  - Malaise [Unknown]
  - Muscular weakness [Unknown]
  - Skin exfoliation [Unknown]
  - Peripheral swelling [Unknown]
  - Patient dissatisfaction with treatment [Unknown]
  - Multiple allergies [Unknown]
  - Photosensitivity reaction [Unknown]
  - Injection site pain [Unknown]
  - Limb injury [Recovering/Resolving]
  - Infection [Recovering/Resolving]
  - Pyrexia [Recovering/Resolving]
  - Rash [Recovering/Resolving]
  - Vitamin E deficiency [Recovering/Resolving]
  - Hypoaesthesia [Recovering/Resolving]
  - Pain [Recovering/Resolving]
  - Therapy interrupted [Unknown]
  - Photosensitivity reaction [Unknown]
  - Treatment noncompliance [Unknown]
  - Influenza [Unknown]
  - Sinusitis [Unknown]
  - Therapy interrupted [Unknown]

NARRATIVE: CASE EVENT DATE: 20240822
